FAERS Safety Report 17710598 (Version 1)
Quarter: 2020Q2

REPORT INFORMATION
  Report Type: Spontaneous
  Country: ES (occurrence: ES)
  Receive Date: 20200427
  Receipt Date: 20200427
  Transmission Date: 20200714
  Serious: Yes (Other)
  Sender: FDA-Public Use
  Company Number: ES-TEVA-2020-ES-1228366

PATIENT
  Age: 75 Year
  Sex: Male

DRUGS (1)
  1. TAMSULOSINA 0,4 MG 30 COMPRIMIDOS LIBERACION MODIFICADA [Suspect]
     Active Substance: TAMSULOSIN HYDROCHLORIDE
     Dosage: 0.4 MG
     Route: 048
     Dates: start: 20191030, end: 20200407

REACTIONS (2)
  - Eyelid oedema [Unknown]
  - Face oedema [Unknown]

NARRATIVE: CASE EVENT DATE: 2020
